FAERS Safety Report 4462498-2 (Version None)
Quarter: 2004Q3

REPORT INFORMATION
  Report Type: 
  Country: None (occurrence: None)
  Receive Date: 20040924
  Receipt Date: 20040914
  Transmission Date: 20050211
  Serious: Yes (Hospitalization)
  Sender: FDA-Public Use
  Company Number: K200401394

PATIENT
  Age: 84 Year
  Sex: Female

DRUGS (5)
  1. ALTACE [Suspect]
     Dosage: 2.5 MG, QD, ORAL
     Route: 048
     Dates: start: 20010101, end: 20040728
  2. ATENOLOL [Suspect]
     Dosage: 50 MG, QD, ORAL
     Route: 048
     Dates: start: 20010101, end: 20040728
  3. VASTAREL ^BIOPHARMA^ (TRIMETAZIDINE HYDROCHLORIDE) [Concomitant]
  4. LIPANTHYL ^BRISTOL-MYERS SQUIBB^ (FENOFIBRATE) [Concomitant]
  5. BROMAZEPAM (BROMAZEPAM) [Concomitant]

REACTIONS (1)
  - SYSTEMIC LUPUS ERYTHEMATOSUS [None]
